FAERS Safety Report 9044096 (Version 30)
Quarter: 2022Q2

REPORT INFORMATION
  Report Type: Report from Study
  Country: CA (occurrence: CA)
  Receive Date: 20130130
  Receipt Date: 20220621
  Transmission Date: 20220721
  Serious: Yes (Hospitalization, Other)
  Sender: FDA-Public Use
  Company Number: PHHY2013CA007594

PATIENT
  Age: 60 Year
  Sex: Female

DRUGS (8)
  1. GLEEVEC [Suspect]
     Active Substance: IMATINIB MESYLATE
     Indication: Chronic myeloid leukaemia
     Dosage: 400 MG, QD
     Route: 048
     Dates: start: 20101230, end: 201101
  2. GLEEVEC [Suspect]
     Active Substance: IMATINIB MESYLATE
     Dosage: 400 MG, QD
     Route: 048
     Dates: start: 201102
  3. GLEEVEC [Suspect]
     Active Substance: IMATINIB MESYLATE
     Dosage: 400 MG, QD
     Route: 048
     Dates: start: 201103
  4. LOSEC [Concomitant]
     Active Substance: OMEPRAZOLE
     Indication: Product used for unknown indication
     Dosage: UNK
     Route: 065
  5. VITAMIN B12 [Concomitant]
     Active Substance: CYANOCOBALAMIN
     Indication: Product used for unknown indication
     Dosage: UNK UNK, QMO
     Route: 065
  6. OMEPRAZOLE [Concomitant]
     Active Substance: OMEPRAZOLE
     Indication: Product used for unknown indication
     Dosage: 20 MG, UNK
     Route: 065
  7. HYDROCHLOROTHIAZIDE [Concomitant]
     Active Substance: HYDROCHLOROTHIAZIDE
     Indication: Hypertension
     Dosage: UNK
     Route: 065
  8. HUMIRA [Concomitant]
     Active Substance: ADALIMUMAB
     Indication: Product used for unknown indication
     Dosage: UNK
     Route: 065
     Dates: start: 20190723

REACTIONS (33)
  - Fistula [Recovering/Resolving]
  - Haemorrhage [Recovered/Resolved]
  - Illness [Not Recovered/Not Resolved]
  - Abdominal abscess [Recovered/Resolved]
  - Abdominal sepsis [Unknown]
  - Pneumonia [Unknown]
  - Genital haemorrhage [Not Recovered/Not Resolved]
  - Diarrhoea haemorrhagic [Unknown]
  - Temperature intolerance [Recovered/Resolved]
  - Blood test abnormal [Unknown]
  - Eye swelling [Unknown]
  - Hypersensitivity [Unknown]
  - Abdominal discomfort [Recovered/Resolved]
  - Infection [Recovering/Resolving]
  - Hot flush [Unknown]
  - Blood pressure decreased [Unknown]
  - Paraesthesia [Recovered/Resolved]
  - Taste disorder [Recovering/Resolving]
  - Influenza [Unknown]
  - Herpes zoster [Recovering/Resolving]
  - Muscle spasms [Recovered/Resolved]
  - Weight decreased [Recovering/Resolving]
  - Rash [Recovering/Resolving]
  - Dyspnoea [Unknown]
  - Chills [Unknown]
  - Hyperhidrosis [Unknown]
  - Gastroenteritis viral [Unknown]
  - Night sweats [Unknown]
  - Chest pain [Unknown]
  - Burning sensation [Recovered/Resolved]
  - Vomiting [Unknown]
  - Nausea [Recovering/Resolving]
  - Diarrhoea [Unknown]

NARRATIVE: CASE EVENT DATE: 20110101
